FAERS Safety Report 13589671 (Version 1)
Quarter: 2017Q2

REPORT INFORMATION
  Report Type: Spontaneous
  Country: US (occurrence: US)
  Receive Date: 20170527
  Receipt Date: 20170527
  Transmission Date: 20170830
  Serious: Yes (Other)
  Sender: FDA-Public Use
  Company Number: None

PATIENT
  Age: 59 Year
  Sex: Female
  Weight: 75.6 kg

DRUGS (8)
  1. ALPHA LIPOIC ACID [Concomitant]
     Active Substance: .ALPHA.-LIPOIC ACID
  2. POLICOSAMOL [Concomitant]
  3. HALOPERIDOL. [Suspect]
     Active Substance: HALOPERIDOL
     Indication: ANXIETY
     Dosage: ?          QUANTITY:1 TABLET(S); AS NEEDED ORAL?
     Route: 048
     Dates: start: 20170525
  4. ACETYL-L-CARNITINE [Concomitant]
  5. TUMERIC [Concomitant]
     Active Substance: HERBALS\TURMERIC
  6. GLUCOSAMINE W/CHONDROTIN AND MSM [Concomitant]
  7. CALCIUM [Concomitant]
     Active Substance: CALCIUM
  8. MAGNESIUM [Concomitant]
     Active Substance: MAGNESIUM

REACTIONS (6)
  - Myalgia [None]
  - Oral disorder [None]
  - Speech disorder [None]
  - Protrusion tongue [None]
  - Drooling [None]
  - Hypersomnia [None]

NARRATIVE: CASE EVENT DATE: 20170526
